FAERS Safety Report 23918333 (Version 2)
Quarter: 2024Q2

REPORT INFORMATION
  Report Type: Spontaneous
  Country: IT (occurrence: IT)
  Receive Date: 20240530
  Receipt Date: 20240607
  Transmission Date: 20240716
  Serious: Yes (Other)
  Sender: FDA-Public Use
  Company Number: IT-BASILEA PHARMACEUTICA DEUTSCHLAND GMBH-IT-BAS-24-00664

PATIENT

DRUGS (2)
  1. CEFTOBIPROLE [Suspect]
     Active Substance: CEFTOBIPROLE
     Indication: Staphylococcal infection
     Dosage: 500 MILLIGRAM, Q12H (1000 MG DAILY)
     Route: 042
     Dates: start: 20240419, end: 20240506
  2. CEFTOBIPROLE [Suspect]
     Active Substance: CEFTOBIPROLE
     Indication: Vascular device infection

REACTIONS (2)
  - Neurotoxicity [Not Recovered/Not Resolved]
  - Intentional product use issue [Unknown]

NARRATIVE: CASE EVENT DATE: 20240505
